FAERS Safety Report 13009912 (Version 1)
Quarter: 2016Q4

REPORT INFORMATION
  Report Type: Spontaneous
  Country: DE (occurrence: DE)
  Receive Date: 20161208
  Receipt Date: 20161208
  Transmission Date: 20170207
  Serious: Yes (Hospitalization)
  Sender: FDA-Public Use
  Company Number: PHHY2016DE166086

PATIENT
  Sex: Male

DRUGS (7)
  1. TASIGNA [Suspect]
     Active Substance: NILOTINIB
     Indication: CHRONIC MYELOID LEUKAEMIA
     Dosage: 600 MG, QD
     Route: 065
     Dates: start: 20131021
  2. OMEBETA [Concomitant]
     Indication: DYSPEPSIA
     Dosage: 20 MG, PRN
     Route: 065
  3. IBUPROFEN. [Concomitant]
     Active Substance: IBUPROFEN
     Indication: ABDOMINAL PAIN UPPER
     Dosage: 400 MG, PRN (AS NEEDED)
     Route: 065
     Dates: start: 20131112
  4. ALLOPURINOL. [Concomitant]
     Active Substance: ALLOPURINOL
     Indication: HYPERURICAEMIA
     Dosage: 300 MG, QD
     Route: 065
     Dates: start: 20131017, end: 20140424
  5. OMEBETA [Concomitant]
     Indication: GASTRITIS
     Dosage: 40 MG, QD
     Route: 065
  6. VORTEX [Concomitant]
     Active Substance: SODIUM FLUORIDE
     Indication: COUGH
     Dosage: UNK
     Route: 065
     Dates: end: 20140424
  7. MUCOLITIC [Concomitant]
     Indication: COUGH
     Dosage: UNK UNK, QD
     Route: 065

REACTIONS (2)
  - Abdominal pain upper [Recovered/Resolved]
  - Pancreatitis [Recovered/Resolved]

NARRATIVE: CASE EVENT DATE: 20160714
